FAERS Safety Report 4865084-5 (Version None)
Quarter: 2005Q4

REPORT INFORMATION
  Report Type: 
  Country: None (occurrence: None)
  Receive Date: 20051223
  Receipt Date: 20051130
  Transmission Date: 20060501
  Serious: Yes (Hospitalization)
  Sender: FDA-Public Use
  Company Number: JP-BRISTOL-MYERS SQUIBB COMPANY-13201629

PATIENT
  Age: 80 Year
  Sex: Female

DRUGS (10)
  1. MAXIPIME [Suspect]
     Indication: PNEUMONIA
     Route: 041
     Dates: start: 20051123, end: 20051125
  2. OLMETEC [Concomitant]
     Route: 048
     Dates: start: 20050408
  3. PAXIL [Concomitant]
     Route: 048
     Dates: start: 20050407
  4. HALCION [Concomitant]
     Route: 048
     Dates: start: 20050426, end: 20051125
  5. FLUITRAN [Concomitant]
     Route: 048
     Dates: start: 20050317
  6. LASIX [Concomitant]
     Route: 048
     Dates: start: 20050526
  7. ACARDI [Concomitant]
     Route: 048
     Dates: start: 20050515
  8. MAGNESIUM OXIDE [Concomitant]
     Route: 048
     Dates: start: 20050222
  9. SENNOSIDE [Concomitant]
     Route: 048
     Dates: start: 20050310
  10. MIYA-BM [Concomitant]
     Route: 048
     Dates: start: 20050318

REACTIONS (7)
  - ALANINE AMINOTRANSFERASE DECREASED [None]
  - ASPARTATE AMINOTRANSFERASE INCREASED [None]
  - BLOOD CREATININE INCREASED [None]
  - DEPRESSED LEVEL OF CONSCIOUSNESS [None]
  - FEELING ABNORMAL [None]
  - MYOCLONUS [None]
  - UNRESPONSIVE TO VERBAL STIMULI [None]
